FAERS Safety Report 17359153 (Version 1)
Quarter: 2020Q1

REPORT INFORMATION
  Report Type: Report from Study
  Country: ES (occurrence: ES)
  Receive Date: 20200203
  Receipt Date: 20200203
  Transmission Date: 20200409
  Serious: Yes (Hospitalization)
  Sender: FDA-Public Use
  Company Number: ES-TEVA-2020-ES-1177652

PATIENT
  Age: 84 Year
  Sex: Female

DRUGS (6)
  1. CLOPIDOGREL [Suspect]
     Active Substance: CLOPIDOGREL BISULFATE
     Indication: ACUTE MYOCARDIAL INFARCTION
     Dosage: 75 MG 1 DAYS
     Route: 048
     Dates: start: 20161103, end: 20180414
  2. CORLENTOR 5 MG COMPRIMIDOS RECUBIERTOS CON PELICULA, 56 COMPRIMIDOS [Concomitant]
     Indication: ANGINA PECTORIS
     Dosage: 10 MG 1 DAYS
     Route: 048
     Dates: start: 20161103, end: 20180414
  3. ADIRO 100 MG COMPRIMIDOS GASTRORRESISTENTES EFG, 30 COMPRIMIDOS (POLIP [Interacting]
     Active Substance: ASPIRIN
     Indication: ACUTE MYOCARDIAL INFARCTION
     Dosage: 100 MG 1 DAYS
     Route: 048
     Dates: start: 20161103, end: 20180414
  4. FUROSEMIDA (1615A) [Concomitant]
     Active Substance: FUROSEMIDE
     Indication: CARDIAC FAILURE
     Dosage: 40 MG 1 DAYS
     Route: 048
     Dates: start: 20161103
  5. BETAHISTINA HIDROCLORURO (489CH) [Concomitant]
     Indication: VERTIGO
     Dosage: 32 MG 1 DAYS
     Route: 048
     Dates: start: 20160825, end: 20180414
  6. FOLICO ACIDO (149A) [Concomitant]
     Indication: ANAEMIA
     Dosage: 5 MG 1 DAYS
     Route: 048
     Dates: start: 20161103, end: 20180414

REACTIONS (2)
  - Lower gastrointestinal haemorrhage [Recovered/Resolved]
  - Drug interaction [Unknown]

NARRATIVE: CASE EVENT DATE: 20180413
